FAERS Safety Report 4785125-3 (Version None)
Quarter: 2005Q3

REPORT INFORMATION
  Report Type: 
  Country: None (occurrence: None)
  Receive Date: 20050928
  Receipt Date: 20050916
  Transmission Date: 20060218
  Serious: Yes (Death)
  Sender: FDA-Public Use
  Company Number: JP-2005-019240

PATIENT
  Age: 57 Year
  Sex: Female
  Weight: 52 kg

DRUGS (12)
  1. FLUDARA [Suspect]
     Indication: CHRONIC LYMPHOCYTIC LEUKAEMIA
     Dosage: SEE IMAGE
     Route: 042
     Dates: start: 20020214, end: 20020218
  2. FLUDARA [Suspect]
     Indication: CHRONIC LYMPHOCYTIC LEUKAEMIA
     Dosage: SEE IMAGE
     Route: 042
     Dates: start: 20020314, end: 20020318
  3. FLUDARA [Suspect]
     Indication: CHRONIC LYMPHOCYTIC LEUKAEMIA
     Dosage: SEE IMAGE
     Route: 042
     Dates: start: 20020829, end: 20020902
  4. SELBEX (TEPRENONE) [Concomitant]
  5. OZEX (TOSUFLOXACIN TOSILATE) [Concomitant]
  6. DIFLUCAN [Concomitant]
  7. COTRIM [Concomitant]
  8. SODIUM ACID PHOSPHATE (SODIUM PHOSPHATE MONOBASIC (ANHYDRATE)) [Concomitant]
  9. ALLOPURINOL [Concomitant]
  10. KYTRIL [Concomitant]
  11. INDERAL [Concomitant]
  12. DEPAS [Concomitant]

REACTIONS (1)
  - BLOOD STEM CELL TRANSPLANT FAILURE [None]
